FAERS Safety Report 19463162 (Version 1)
Quarter: 2021Q2

REPORT INFORMATION
  Report Type: Spontaneous
  Country: US (occurrence: US)
  Receive Date: 20210627
  Receipt Date: 20210627
  Transmission Date: 20210717
  Serious: No
  Sender: FDA-Public Use
  Company Number: US-ORGANON-O2106USA001546

PATIENT
  Age: 10 Year
  Sex: Male
  Weight: 38 kg

DRUGS (4)
  1. POLYETHYLENE GLYCOL 3350. [Concomitant]
     Active Substance: POLYETHYLENE GLYCOL 3350
     Dosage: 8.5 GRAM, QD
  2. GUANFACINE. [Concomitant]
     Active Substance: GUANFACINE
     Dosage: 2 MILLIGRAM, QD
  3. REMERON [Suspect]
     Active Substance: MIRTAZAPINE
     Dosage: 15 MILLIGRAM, QPM
     Route: 048
  4. SERTRALINE [Concomitant]
     Active Substance: SERTRALINE HYDROCHLORIDE
     Dosage: 50 MILLIGRAM, QD

REACTIONS (1)
  - Product use issue [Unknown]
